FAERS Safety Report 11003107 (Version 2)
Quarter: 2015Q3

REPORT INFORMATION
  Report Type: Report from Study
  Country: TR (occurrence: TR)
  Receive Date: 20150409
  Receipt Date: 20150715
  Transmission Date: 20151125
  Serious: Yes (Hospitalization)
  Sender: FDA-Public Use
  Company Number: PHHO2015TR004804

PATIENT
  Age: 26 Year
  Sex: Female
  Weight: 53 kg

DRUGS (4)
  1. BLINDED ACZ885 [Suspect]
     Active Substance: CANAKINUMAB
     Indication: PYREXIA
     Dosage: CODE NOT BROKEN
     Route: 058
     Dates: start: 20141213
  2. BLINDED NO TREATMENT RECEIVED [Suspect]
     Active Substance: UNSPECIFIED INGREDIENT
     Indication: PYREXIA
     Dosage: CODE NOT BROKEN
     Route: 058
     Dates: start: 20141213
  3. COLCHICINE OPOCALCIUM [Concomitant]
     Active Substance: COLCHICINE
     Indication: FAMILIAL MEDITERRANEAN FEVER
     Dosage: 1 MG, BID
     Route: 048
     Dates: start: 2007
  4. PLACEBO [Suspect]
     Active Substance: UNSPECIFIED INGREDIENT
     Indication: PYREXIA
     Dosage: CODE NOT BROKEN
     Route: 058
     Dates: start: 20141213

REACTIONS (2)
  - Atypical pneumonia [Recovering/Resolving]
  - Cough [Recovered/Resolved]

NARRATIVE: CASE EVENT DATE: 20150304
